FAERS Safety Report 19092961 (Version 3)
Quarter: 2025Q3

REPORT INFORMATION
  Report Type: Report from Study
  Country: KR (occurrence: KR)
  Receive Date: 20210405
  Receipt Date: 20250926
  Transmission Date: 20251020
  Serious: Yes (Hospitalization)
  Sender: TAKEDA
  Company Number: KR-TAKEDA-2021TUS019008

PATIENT
  Age: 36 Year
  Sex: Male
  Weight: 108 kg

DRUGS (7)
  1. VEDOLIZUMAB [Suspect]
     Active Substance: VEDOLIZUMAB
     Indication: Colitis ulcerative
  2. K contin [Concomitant]
     Dosage: 600 MILLIGRAM, TID
     Dates: start: 20210313, end: 20210316
  3. ALBUMIN HUMAN [Concomitant]
     Active Substance: ALBUMIN HUMAN
     Dosage: 100 MILLIGRAM, QD
     Dates: start: 20210311, end: 20210317
  4. SMOFLIPID [Concomitant]
     Active Substance: FISH OIL\MEDIUM-CHAIN TRIGLYCERIDES\OLIVE OIL\SOYBEAN OIL
     Dosage: 500 MILLIGRAM, QD
     Dates: start: 20210311, end: 20210312
  5. PENTASA [Concomitant]
     Active Substance: MESALAMINE
     Dosage: UNK UNK, BID
     Dates: start: 20200720
  6. PROBIOTICS NOS [Concomitant]
     Active Substance: PROBIOTICS NOS
     Dosage: 20 MILLIGRAM, BID
     Dates: start: 20200728
  7. Solondo [Concomitant]

REACTIONS (3)
  - Anal haemorrhage [Recovered/Resolved]
  - Hypophagia [Recovered/Resolved]
  - Asthenia [Recovered/Resolved]

NARRATIVE: CASE EVENT DATE: 20210113
